FAERS Safety Report 7286372-1 (Version None)
Quarter: 2011Q1

REPORT INFORMATION
  Report Type: 
  Country: None (occurrence: None)
  Receive Date: 20110210
  Receipt Date: 20110207
  Transmission Date: 20110831
  Serious: Yes (Life-Threatening, Hospitalization)
  Sender: FDA-Public Use
  Company Number: US-KINGPHARMUSA00001-K201001562

PATIENT
  Sex: Female
  Weight: 78.458 kg

DRUGS (2)
  1. BENZODIAZEPINE DERIVATIVES [Concomitant]
     Indication: PAIN
     Dosage: UNK
     Route: 048
  2. EMBEDA [Suspect]
     Indication: PAIN
     Dosage: 130 MG, BID
     Route: 048
     Dates: start: 20101124, end: 20101127

REACTIONS (3)
  - RESPIRATORY DISTRESS [None]
  - DRUG ABUSE [None]
  - OVERDOSE [None]
